FAERS Safety Report 11515581 (Version 10)
Quarter: 2016Q2

REPORT INFORMATION
  Report Type: Report from Study
  Country: US (occurrence: US)
  Receive Date: 20150916
  Receipt Date: 20160511
  Transmission Date: 20160815
  Serious: Yes (Other)
  Sender: FDA-Public Use
  Company Number: US-MALLINCKRODT-T201503249

PATIENT
  Age: 57 Year
  Sex: Male

DRUGS (5)
  1. ASMANEX [Suspect]
     Active Substance: MOMETASONE FUROATE
     Indication: PRODUCT USED FOR UNKNOWN INDICATION
     Dosage: UNKNOWN DOSE/FREQUENCY
     Route: 065
  2. REPOSITORY CORTICOTROPIN INJECTION [Suspect]
     Active Substance: CORTICOTROPIN
     Dosage: UNK
  3. PREDNISONE. [Concomitant]
     Active Substance: PREDNISONE
     Dosage: 2.5 MG EVERY MONDAY, WEDNESDAY AND FRIDAY
  4. REPOSITORY CORTICOTROPIN INJECTION [Suspect]
     Active Substance: CORTICOTROPIN
     Indication: SARCOIDOSIS
     Dosage: 80 UNITS TWICE PER WEEK (M/TH)
     Route: 058
     Dates: start: 20150429
  5. METFORMIN [Concomitant]
     Active Substance: METFORMIN HYDROCHLORIDE

REACTIONS (16)
  - Fatigue [Recovering/Resolving]
  - Diarrhoea [Unknown]
  - Epistaxis [Not Recovered/Not Resolved]
  - Liquid product physical issue [Unknown]
  - Pulmonary mass [Not Recovered/Not Resolved]
  - Oropharyngeal pain [Not Recovered/Not Resolved]
  - Vision blurred [Unknown]
  - Blood glucose increased [Not Recovered/Not Resolved]
  - Insomnia [Not Recovered/Not Resolved]
  - Drug interaction [Not Recovered/Not Resolved]
  - Chronic obstructive pulmonary disease [Not Recovered/Not Resolved]
  - Glycosylated haemoglobin increased [Not Recovered/Not Resolved]
  - Therapy cessation [Recovered/Resolved]
  - Joint stiffness [Recovering/Resolving]
  - Acne pustular [Recovered/Resolved]
  - Nausea [Unknown]

NARRATIVE: CASE EVENT DATE: 20150804
